FAERS Safety Report 21253568 (Version 1)
Quarter: 2022Q3

REPORT INFORMATION
  Report Type: Spontaneous
  Country: US (occurrence: None)
  Receive Date: 20220824
  Receipt Date: 20220824
  Transmission Date: 20221027
  Serious: Yes (Hospitalization, Disabling)
  Sender: FDA-Public Use
  Company Number: None

PATIENT
  Age: 28 Year
  Sex: Male

DRUGS (6)
  1. TOBRAMYCIN [Suspect]
     Active Substance: TOBRAMYCIN
     Indication: Pneumonia pseudomonal
     Dosage: OTHER FREQUENCY : 4 WKS ON, OFF;?
     Route: 055
     Dates: start: 20211006, end: 20220820
  2. LORATADINE [Concomitant]
     Active Substance: LORATADINE
  3. LEVETIRACETAM [Concomitant]
     Active Substance: LEVETIRACETAM
  4. PAROXETINE [Concomitant]
     Active Substance: PAROXETINE
  5. ALBUTEROL SULFATE [Concomitant]
     Active Substance: ALBUTEROL SULFATE
  6. CLONAZEPAM [Concomitant]
     Active Substance: CLONAZEPAM

REACTIONS (3)
  - Blood urine present [None]
  - Mouth haemorrhage [None]
  - Blood creatinine increased [None]

NARRATIVE: CASE EVENT DATE: 20220820
